FAERS Safety Report 5062286-2 (Version None)
Quarter: 2006Q3

REPORT INFORMATION
  Report Type: 
  Country: None (occurrence: None)
  Receive Date: 20060703
  Receipt Date: 20051011
  Transmission Date: 20061208
  Serious: No
  Sender: FDA-Public Use
  Company Number: 2005S1010263

PATIENT
  Age: 44 Year
  Sex: Female

DRUGS (8)
  1. CLOZAPINE [Suspect]
     Dosage: 150 MG; HS; ORAL
     Route: 048
     Dates: start: 20050615
  2. AMITRIPTYLINE HCL [Concomitant]
  3. LORAZEPAM [Concomitant]
  4. ESOMEPRAZOLE MAGNESIUM [Concomitant]
  5. MACROGOL [Concomitant]
  6. MIRTAZAPINE [Concomitant]
  7. LEVOTHYROXINE SODIUM [Concomitant]
  8. DOCUSATE SODIUM [Concomitant]

REACTIONS (1)
  - GRANULOCYTOPENIA [None]
